FAERS Safety Report 5850244-7 (Version None)
Quarter: 2008Q3

REPORT INFORMATION
  Report Type: 
  Country: None (occurrence: None)
  Receive Date: 20080819
  Receipt Date: 20080809
  Transmission Date: 20090109
  Serious: Yes (Other)
  Sender: FDA-Public Use
  Company Number: PHHY2008DE17939

PATIENT

DRUGS (2)
  1. EXJADE [Suspect]
  2. HUMAN GROWTH HORMONE, RECOMBINANT [Concomitant]

REACTIONS (1)
  - GROWTH RETARDATION [None]
